FAERS Safety Report 6886783-X (Version None)
Quarter: 2010Q3

REPORT INFORMATION
  Report Type: 
  Country: None (occurrence: None)
  Receive Date: 20100730
  Receipt Date: 20100722
  Transmission Date: 20110219
  Serious: Yes (Other)
  Sender: FDA-Public Use
  Company Number: US-PFIZER INC-2010074314

PATIENT
  Sex: Male

DRUGS (3)
  1. VFEND [Suspect]
     Indication: PSEUDALLESCHERIA INFECTION
     Dosage: 300 MG, 2X/DAY
     Route: 048
     Dates: start: 20091120, end: 20100408
  2. TRIMETHOPRIM + SULFAMETHOXAZOLE [Suspect]
  3. VALSARTAN [Concomitant]
     Dosage: DAILY

REACTIONS (3)
  - DEPRESSION [None]
  - SKIN INFECTION [None]
  - SUNBURN [None]
